FAERS Safety Report 8397329-1 (Version None)
Quarter: 2012Q2

REPORT INFORMATION
  Report Type: 
  Country: None (occurrence: None)
  Receive Date: 20120531
  Receipt Date: 20120522
  Transmission Date: 20120825
  Serious: No
  Sender: FDA-Public Use
  Company Number: US-BIOGENIDEC-2012BI010147

PATIENT
  Age: 32 Year
  Sex: Female

DRUGS (1)
  1. TYSABRI [Suspect]
     Indication: MULTIPLE SCLEROSIS
     Route: 042
     Dates: start: 20110803

REACTIONS (6)
  - EAR INFECTION [None]
  - PHARYNGITIS STREPTOCOCCAL [None]
  - IMMUNODEFICIENCY COMMON VARIABLE [None]
  - SINUSITIS [None]
  - NASOPHARYNGITIS [None]
  - EAR PAIN [None]
